FAERS Safety Report 17729253 (Version 3)
Quarter: 2020Q2

REPORT INFORMATION
  Report Type: Spontaneous
  Country: IT (occurrence: IT)
  Receive Date: 20200430
  Receipt Date: 20200608
  Transmission Date: 20200714
  Serious: Yes (Hospitalization, Other)
  Sender: FDA-Public Use
  Company Number: IT-MYLANLABS-2020M1041810

PATIENT
  Age: 30 Year
  Sex: Female

DRUGS (9)
  1. RISPERIDONE. [Suspect]
     Active Substance: RISPERIDONE
     Indication: EPILEPSY
     Dosage: UNK
     Route: 065
  2. ESTROGEN [Suspect]
     Active Substance: ESTROGENS
     Indication: MENSTRUATION IRREGULAR
     Dosage: UNK
     Route: 065
  3. CLONAZEPAM. [Interacting]
     Active Substance: CLONAZEPAM
     Indication: NERVOUS SYSTEM DISORDER
  4. PROGESTERONE. [Interacting]
     Active Substance: PROGESTERONE
     Indication: PRODUCT USED FOR UNKNOWN INDICATION
     Dosage: UNK
     Route: 065
  5. VALPROATE [Interacting]
     Active Substance: VALPROIC ACID
     Indication: NERVOUS SYSTEM DISORDER
  6. RISPERIDONE. [Interacting]
     Active Substance: RISPERIDONE
     Indication: NERVOUS SYSTEM DISORDER
  7. VALPROATE [Interacting]
     Active Substance: VALPROIC ACID
     Indication: EPILEPSY
     Dosage: UNK
     Route: 065
  8. PHENOBARBITAL. [Suspect]
     Active Substance: PHENOBARBITAL
     Indication: EPILEPSY
     Dosage: UNK
     Route: 065
  9. CLONAZEPAM. [Interacting]
     Active Substance: CLONAZEPAM
     Indication: EPILEPSY
     Dosage: UNK
     Route: 065

REACTIONS (2)
  - Breast hyperplasia [Recovered/Resolved]
  - Drug interaction [Recovered/Resolved]
